FAERS Safety Report 7493475-5 (Version None)
Quarter: 2011Q2

REPORT INFORMATION
  Report Type: 
  Country: None (occurrence: None)
  Receive Date: 20110520
  Receipt Date: 20101227
  Transmission Date: 20111010
  Serious: Yes (Hospitalization)
  Sender: FDA-Public Use
  Company Number: US-BAYER-201021938NA

PATIENT
  Age: 33 Year
  Sex: Female
  Weight: 66.213 kg

DRUGS (10)
  1. NSAID'S [Concomitant]
  2. YAZ [Suspect]
     Indication: PREMENSTRUAL SYNDROME
  3. SYNTHROID [Concomitant]
     Indication: THYROID DISORDER
     Dosage: UNK
     Dates: start: 20010101
  4. YAZ [Suspect]
     Indication: ACNE
     Dosage: UNK UNK, QD
     Route: 048
     Dates: start: 20041001, end: 20050201
  5. ZOVIRAX [Concomitant]
     Indication: HERPES SIMPLEX
     Dosage: UNK
     Dates: start: 19990101
  6. LORTAB [Concomitant]
     Dosage: 7.5 MG, QID
     Dates: start: 20050101
  7. WELLBUTRIN [Concomitant]
     Dosage: UNK
     Dates: start: 20050201
  8. ZOVIRAX [Concomitant]
     Indication: PRODUCT USED FOR UNKNOWN INDICATION
     Dosage: 400 MG, QID
     Dates: start: 20050101
  9. PHENERGAN HCL [Concomitant]
     Indication: NAUSEA
     Dosage: UNK UNK, PRN
     Route: 048
  10. PERCOCET [Concomitant]
     Indication: PAIN
     Dosage: UNK UNK, PRN
     Route: 048

REACTIONS (8)
  - ABDOMINAL PAIN UPPER [None]
  - DECREASED APPETITE [None]
  - NAUSEA [None]
  - DIARRHOEA [None]
  - GALLBLADDER DISORDER [None]
  - VOMITING [None]
  - BILIARY DYSKINESIA [None]
  - ABDOMINAL PAIN LOWER [None]
